FAERS Safety Report 7756872-6 (Version None)
Quarter: 2011Q3

REPORT INFORMATION
  Report Type: 
  Country: None (occurrence: None)
  Receive Date: 20110916
  Receipt Date: 20110913
  Transmission Date: 20111222
  Serious: Yes (Hospitalization)
  Sender: FDA-Public Use
  Company Number: US-GLAXOSMITHKLINE-A0753979A

PATIENT
  Age: 52 Year
  Sex: Female
  Weight: 118.2 kg

DRUGS (7)
  1. XANAX [Concomitant]
  2. ZOCOR [Concomitant]
     Dates: start: 20050801, end: 20080201
  3. GLUCOPHAGE [Concomitant]
  4. AVANDIA [Suspect]
     Indication: DIABETES MELLITUS
     Dosage: 4MG TWICE PER DAY
     Route: 048
     Dates: start: 20040331
  5. AVANDAMET [Suspect]
     Indication: DIABETES MELLITUS
  6. METFORMIN HCL [Concomitant]
  7. EFFEXOR [Concomitant]

REACTIONS (4)
  - ATRIAL FIBRILLATION [None]
  - ARRHYTHMIA [None]
  - HYPERLIPIDAEMIA [None]
  - ISCHAEMIA [None]
